FAERS Safety Report 8379313-7 (Version None)
Quarter: 2012Q2

REPORT INFORMATION
  Report Type: 
  Country: None (occurrence: None)
  Receive Date: 20120523
  Receipt Date: 20120516
  Transmission Date: 20120825
  Serious: Yes (Other)
  Sender: FDA-Public Use
  Company Number: PHHY2012BR029131

PATIENT
  Sex: Female
  Weight: 35 kg

DRUGS (3)
  1. EXELON [Suspect]
     Dosage: 6 MG, BID
     Route: 048
  2. EXELON [Suspect]
     Indication: DEMENTIA ALZHEIMER'S TYPE
     Dosage: 3 MG, BID
     Route: 048
  3. MEMANTINE HYDROCHLORIDE [Concomitant]
     Indication: DEMENTIA ALZHEIMER'S TYPE
     Dosage: 10 MG, BID
     Route: 048

REACTIONS (5)
  - SOMNOLENCE [None]
  - DIARRHOEA [None]
  - DEPRESSED MOOD [None]
  - DECREASED APPETITE [None]
  - WEIGHT DECREASED [None]
